FAERS Safety Report 7843355-8 (Version None)
Quarter: 2011Q4

REPORT INFORMATION
  Report Type: 
  Country: None (occurrence: None)
  Receive Date: 20111025
  Receipt Date: 20111019
  Transmission Date: 20120403
  Serious: Yes (Other)
  Sender: FDA-Public Use
  Company Number: BR-PFIZER INC-2011252820

PATIENT
  Age: 55 Year
  Sex: Female
  Weight: 80.5 kg

DRUGS (9)
  1. ASPIRIN [Concomitant]
     Dosage: 100 MG, 1X/DAY
  2. ENALAPRIL [Concomitant]
     Dosage: UNSPECIFIED DOSAGE, TWICE DAILY
  3. CLOPIDOGREL [Concomitant]
     Dosage: 75 MG, 1X/DAY
  4. ATORVASTATIN CALCIUM [Suspect]
     Indication: DYSLIPIDAEMIA
     Dosage: 80 MG, 1X/DAY
  5. INSULIN HUMAN [Concomitant]
     Dosage: 62:32:16 (UNSPECIFIED UNIT)
  6. CARVEDILOL [Concomitant]
     Dosage: 6.25 MG, 2X/DAY
  7. METFORMIN HYDROCHLORIDE/VILDAGLIPTIN [Suspect]
     Indication: DIABETES MELLITUS
     Dosage: [METFORMIN 850 MG/ VIDAGLIPTIN 50MG] TWICE DAILY
     Dates: start: 20110520
  8. METFORMIN [Concomitant]
     Dosage: 850 MG, 2X/DAY
  9. FUROSEMIDE [Concomitant]
     Dosage: 40 MG, 1X/DAY

REACTIONS (5)
  - HYPERGLYCAEMIA [None]
  - BLOOD GLUCOSE INCREASED [None]
  - GLYCOSYLATED HAEMOGLOBIN INCREASED [None]
  - WEIGHT DECREASED [None]
  - DYSPNOEA [None]
